FAERS Safety Report 24198954 (Version 1)
Quarter: 2024Q3

REPORT INFORMATION
  Report Type: Spontaneous
  Country: US (occurrence: US)
  Receive Date: 20240812
  Receipt Date: 20240812
  Transmission Date: 20241016
  Serious: Yes (Other)
  Sender: BIOCRYST PHARMACEUTICALS
  Company Number: US-BIOCRYST PHARMACEUTICALS, INC.-2024BCR00814

PATIENT

DRUGS (2)
  1. ORLADEYO [Suspect]
     Active Substance: BEROTRALSTAT HYDROCHLORIDE
     Indication: Hereditary angioedema
     Dosage: 150 MG
  2. NEURONTIN [Concomitant]
     Active Substance: GABAPENTIN
     Indication: Seizure
     Dosage: UNK

REACTIONS (3)
  - Seizure [Recovered/Resolved]
  - Mental impairment [Recovering/Resolving]
  - Loss of consciousness [Recovered/Resolved]

NARRATIVE: CASE EVENT DATE: 20240101
